FAERS Safety Report 22395137 (Version 1)
Quarter: 2023Q2

REPORT INFORMATION
  Report Type: Spontaneous
  Country: BR (occurrence: BR)
  Receive Date: 20230601
  Receipt Date: 20230601
  Transmission Date: 20230721
  Serious: Yes (Other)
  Sender: FDA-Public Use
  Company Number: BR-TAKEDA-2023TUS052655

PATIENT
  Sex: Female

DRUGS (5)
  1. LISDEXAMFETAMINE DIMESYLATE [Suspect]
     Active Substance: LISDEXAMFETAMINE DIMESYLATE
     Indication: Depression
     Dosage: UNK, QD
     Route: 048
  2. LISDEXAMFETAMINE DIMESYLATE [Suspect]
     Active Substance: LISDEXAMFETAMINE DIMESYLATE
     Indication: Personality disorder
  3. RIVOTRIL [Concomitant]
     Active Substance: CLONAZEPAM
  4. VENLAFAXINE [Concomitant]
     Active Substance: VENLAFAXINE HYDROCHLORIDE
     Indication: Depression
  5. VENLAFAXINE [Concomitant]
     Active Substance: VENLAFAXINE HYDROCHLORIDE
     Indication: Personality disorder

REACTIONS (21)
  - Hypothyroidism [Unknown]
  - Thinking abnormal [Recovered/Resolved]
  - Hyperventilation [Unknown]
  - Malaise [Unknown]
  - Asthenia [Unknown]
  - Apathy [Unknown]
  - Visual impairment [Recovered/Resolved]
  - Bradykinesia [Unknown]
  - Feeling abnormal [Unknown]
  - Therapeutic product effect prolonged [Unknown]
  - Mydriasis [Recovered/Resolved]
  - Insomnia [Unknown]
  - Tachycardia [Recovered/Resolved]
  - Hyperhidrosis [Recovered/Resolved]
  - Dyspnoea [Unknown]
  - Anxiety [Unknown]
  - Urticaria [Unknown]
  - Off label use [Unknown]
  - Product use issue [Unknown]
  - Wrong technique in product usage process [Unknown]
  - Extra dose administered [Unknown]
